FAERS Safety Report 24276156 (Version 2)
Quarter: 2024Q4

REPORT INFORMATION
  Report Type: Spontaneous
  Country: US (occurrence: US)
  Receive Date: 20240903
  Receipt Date: 20241018
  Transmission Date: 20250114
  Serious: Yes (Other)
  Sender: BAXTER
  Company Number: US-BAXTER-2024BAX023704

PATIENT
  Age: 69 Year
  Sex: Male
  Weight: 94.9 kg

DRUGS (4)
  1. MYXREDLIN [Suspect]
     Active Substance: INSULIN HUMAN
     Indication: Postoperative care
     Dosage: UNK
     Route: 065
     Dates: end: 20240627
  2. MYXREDLIN [Suspect]
     Active Substance: INSULIN HUMAN
     Indication: Diabetes mellitus inadequate control
     Dosage: 2-33.5 UNITS/HR VIA INTRAVENOUS ROUTE
     Route: 042
     Dates: start: 20240627
  3. MYXREDLIN [Suspect]
     Active Substance: INSULIN HUMAN
     Indication: Hyperglycaemia
     Dosage: 1.5 UNITS/HR
     Route: 042
  4. PREDNISONE [Suspect]
     Active Substance: PREDNISONE
     Dosage: UNK
     Route: 065

REACTIONS (4)
  - Critical illness [Unknown]
  - Drug ineffective [Recovering/Resolving]
  - Hypoglycaemia [Recovered/Resolved]
  - Dizziness [Unknown]

NARRATIVE: CASE EVENT DATE: 20240709
